FAERS Safety Report 8825014 (Version 1)
Quarter: 2012Q4

REPORT INFORMATION
  Report Type: 
  Country: US (occurrence: US)
  Receive Date: 20121004
  Receipt Date: 20121004
  Transmission Date: 20130627
  Serious: Yes (Death)
  Sender: FDA-Public Use
  Company Number: US-ROCHE-1131985

PATIENT
  Sex: Female

DRUGS (7)
  1. RITUXAN [Suspect]
     Indication: CHRONIC LYMPHOCYTIC LEUKAEMIA
     Route: 065
     Dates: start: 19991028
  2. RITUXAN [Suspect]
     Route: 065
     Dates: start: 19991104
  3. RITUXAN [Suspect]
     Route: 065
     Dates: start: 19991116
  4. ANZEMET [Concomitant]
     Dosage: 30 minutes before Rituximab infusion
     Route: 042
  5. DECADRON [Concomitant]
     Dosage: 30 minutes before Rituximab infusion
     Route: 042
  6. BENADRYL [Concomitant]
     Dosage: 30 minutes before Rituximab infusion
     Route: 048
  7. TYLENOL [Concomitant]
     Dosage: 30 minutes before Rituximab infusion
     Route: 065

REACTIONS (3)
  - Death [Fatal]
  - Hypotension [Recovering/Resolving]
  - Dyspnoea [Recovering/Resolving]
